FAERS Safety Report 9555435 (Version 1)
Quarter: 2013Q3

REPORT INFORMATION
  Report Type: Spontaneous
  Country: ES (occurrence: ES)
  Receive Date: 20130926
  Receipt Date: 20130926
  Transmission Date: 20140515
  Serious: Yes (Life-Threatening, Hospitalization)
  Sender: FDA-Public Use
  Company Number: ES-JNJFOC-20130912827

PATIENT
  Age: 82 Year
  Sex: Female

DRUGS (5)
  1. DIGOXIN [Interacting]
     Indication: ATRIAL FIBRILLATION
     Route: 048
     Dates: start: 2007, end: 20121026
  2. VENLAFAXINE [Interacting]
     Indication: DEPRESSION
     Route: 048
     Dates: start: 200704, end: 20121026
  3. HYDROCHLOROTHIAZIDE [Interacting]
     Indication: HYPERTENSION
     Route: 048
     Dates: end: 20121026
  4. RISPERDAL [Suspect]
     Indication: EPILEPSY
     Route: 048
     Dates: start: 200704, end: 20121026
  5. ACENOCOUMAROL [Interacting]
     Indication: ATRIAL FIBRILLATION
     Route: 048
     Dates: start: 2005, end: 20121026

REACTIONS (6)
  - Subdural haematoma [Recovered/Resolved]
  - Drug interaction [Unknown]
  - Fall [Unknown]
  - Complex partial seizures [Not Recovered/Not Resolved]
  - Off label use [Unknown]
  - Head injury [Unknown]
